FAERS Safety Report 10154535 (Version 1)
Quarter: 2014Q2

REPORT INFORMATION
  Report Type: Spontaneous
  Country: US (occurrence: US)
  Receive Date: 20140506
  Receipt Date: 20140506
  Transmission Date: 20141212
  Serious: No
  Sender: FDA-Public Use
  Company Number: US-PFIZER INC-2014121249

PATIENT
  Age: 51 Year
  Sex: Female
  Weight: 88.44 kg

DRUGS (5)
  1. NEURONTIN [Suspect]
     Indication: NEURALGIA
     Dosage: 300 MG, 2X/DAY
     Route: 048
     Dates: start: 20140422, end: 20140428
  2. NEURONTIN [Suspect]
     Dosage: 300 MG, 3X/DAY
     Route: 048
     Dates: start: 20140428
  3. ACETAMINOPHEN W/HYDROCODONE BITARTRATE [Concomitant]
     Indication: NEURALGIA
     Dosage: 325/10 MG, 4X/DAY
  4. ZOLOFT [Concomitant]
     Dosage: UNK, 1X/DAY
  5. FLEXERIL [Concomitant]
     Dosage: UNK, 1X/DAY (AT NIGHT)

REACTIONS (2)
  - Therapeutic response changed [Unknown]
  - Drug ineffective for unapproved indication [Unknown]
